FAERS Safety Report 8493115-2 (Version None)
Quarter: 2012Q3

REPORT INFORMATION
  Report Type: 
  Country: None (occurrence: None)
  Receive Date: 20120706
  Receipt Date: 20120626
  Transmission Date: 20120928
  Serious: Yes (Hospitalization)
  Sender: FDA-Public Use
  Company Number: ES-JNJFOC-20120212068

PATIENT
  Age: 47 Year
  Sex: Female

DRUGS (4)
  1. RISPERDAL [Suspect]
     Indication: SCHIZOAFFECTIVE DISORDER
     Route: 048
     Dates: start: 20060101, end: 20111018
  2. FAMCICLOVIR [Concomitant]
     Indication: GENITAL HERPES
     Route: 048
     Dates: start: 20111010, end: 20111017
  3. SERTRALINE HYDROCHLORIDE [Interacting]
     Indication: DEPRESSION
     Route: 048
     Dates: start: 20060101, end: 20111018
  4. RHODOGIL [Concomitant]
     Indication: PRODUCT USED FOR UNKNOWN INDICATION
     Route: 065
     Dates: start: 20111010, end: 20111017

REACTIONS (2)
  - DRUG INTERACTION [None]
  - INAPPROPRIATE ANTIDIURETIC HORMONE SECRETION [None]
